FAERS Safety Report 6526292-0 (Version None)
Quarter: 2009Q4

REPORT INFORMATION
  Report Type: 
  Country: None (occurrence: None)
  Receive Date: 20091222
  Receipt Date: 20091208
  Transmission Date: 20100525
  Serious: Yes (Other)
  Sender: FDA-Public Use
  Company Number: DSA_42183_2009

PATIENT
  Sex: Male

DRUGS (6)
  1. BUPROPION HYDROCHLORIDE (BUPROPION HYDROCHLORIDE) 150 MG [Suspect]
     Indication: DRUG USE FOR UNKNOWN INDICATION
     Dosage: (13500 MG 1X, ORAL)
     Route: 048
     Dates: start: 20091208, end: 20091208
  2. DELIX /00885601/ (DELIX - RAMIPRIL ) 5 MG (NOT SPECIFIED) [Suspect]
     Indication: DRUG USE FOR UNKNOWN INDICATION
     Dosage: (250 MG 1X, ORAL)
     Route: 048
     Dates: start: 20091208, end: 20091208
  3. IBUPROFEN [Suspect]
     Indication: DRUG USE FOR UNKNOWN INDICATION
     Dosage: (6000 MG 1X,)
     Dates: start: 20091208, end: 20091208
  4. ZOPICLONE (ZOPICLONE) 7.5 MG [Suspect]
     Indication: DRUG USE FOR UNKNOWN INDICATION
     Dosage: (75 MG 1X, ORAL)
     Route: 048
     Dates: start: 20091208, end: 20091208
  5. INSIDON (INSIDON - OPIPRAMOL HYDROCHLORIDE) 50 MG (NOT SPECIFIED) [Suspect]
     Indication: DRUG USE FOR UNKNOWN INDICATION
     Dosage: (2500 MG 1X, ORAL)
     Route: 048
     Dates: start: 20091208, end: 20091208
  6. ALCOHOL (ALCOHOL ) [Suspect]
     Indication: DRUG USE FOR UNKNOWN INDICATION
     Dosage: (2.3 PER MILLE ORAL)
     Route: 048
     Dates: start: 20091208, end: 20091208

REACTIONS (5)
  - ALCOHOL USE [None]
  - MULTIPLE DRUG OVERDOSE INTENTIONAL [None]
  - SOPOR [None]
  - SUICIDE ATTEMPT [None]
  - TACHYCARDIA [None]
